FAERS Safety Report 5792556-1 (Version None)
Quarter: 2008Q2

REPORT INFORMATION
  Report Type: 
  Country: None (occurrence: None)
  Receive Date: 20080624
  Receipt Date: 20080613
  Transmission Date: 20081010
  Serious: Yes (Death)
  Sender: FDA-Public Use
  Company Number: 2008-01725

PATIENT
  Age: 67 Year
  Sex: Male
  Weight: 80 kg

DRUGS (8)
  1. VELCADE [Suspect]
     Indication: MULTIPLE MYELOMA
     Dosage: 1.3 MG/M2,
  2. ASPIRIN [Concomitant]
  3. ATORVASTATIN CALCIUM [Concomitant]
  4. BENDROFLUMETHIAZIDE (BENDROFLUMETHIAZIDE) [Concomitant]
  5. OMEPRAZOLE [Concomitant]
  6. QVAR [Concomitant]
  7. CIPROFLOXACIN [Concomitant]
  8. FLUCONAZOLE [Concomitant]

REACTIONS (2)
  - ASPIRATION [None]
  - SUDDEN DEATH [None]
